FAERS Safety Report 5066481-8 (Version None)
Quarter: 2006Q3

REPORT INFORMATION
  Report Type: 
  Country: None (occurrence: None)
  Receive Date: 20060717
  Receipt Date: 20050616
  Transmission Date: 20061208
  Serious: Yes (Hospitalization, Other)
  Sender: FDA-Public Use
  Company Number: 2005-06-1427

PATIENT
  Age: 55 Year
  Sex: Male

DRUGS (3)
  1. INTEGRILIN [Suspect]
     Dosage: 6.8-12.0 ML INTRAVENOUS
     Route: 042
     Dates: start: 20050529, end: 20050529
  2. HEPARIN [Suspect]
  3. LEVOTHROID [Concomitant]

REACTIONS (12)
  - ANAEMIA [None]
  - APNOEA [None]
  - ATRIOVENTRICULAR BLOCK THIRD DEGREE [None]
  - BLOOD POTASSIUM DECREASED [None]
  - CARDIAC FAILURE CONGESTIVE [None]
  - CORONARY ARTERY OCCLUSION [None]
  - HAEMOPTYSIS [None]
  - HYPOTENSION [None]
  - LOSS OF CONSCIOUSNESS [None]
  - OXYGEN SATURATION DECREASED [None]
  - PULMONARY ALVEOLAR HAEMORRHAGE [None]
  - VENTRICULAR HYPOKINESIA [None]
